FAERS Safety Report 13880791 (Version 3)
Quarter: 2017Q4

REPORT INFORMATION
  Report Type: Report from Study
  Country: US (occurrence: US)
  Receive Date: 20170818
  Receipt Date: 20171113
  Transmission Date: 20180320
  Serious: Yes (Hospitalization)
  Sender: FDA-Public Use
  Company Number: US-ASTRAZENECA-2017SE81129

PATIENT
  Age: 83 Year
  Sex: Male
  Weight: 91.2 kg

DRUGS (2)
  1. INCB024360 [Suspect]
     Active Substance: EPACADOSTAT
     Indication: NEOPLASM
     Route: 048
     Dates: start: 20170614, end: 20170726
  2. MEDI4736 [Suspect]
     Active Substance: DURVALUMAB
     Indication: NEOPLASM
     Route: 042
     Dates: start: 20170614, end: 20170726

REACTIONS (2)
  - Polyneuropathy [Recovered/Resolved]
  - Cerebrovascular accident [Recovered/Resolved]

NARRATIVE: CASE EVENT DATE: 20170725
